FAERS Safety Report 4417202-0 (Version None)
Quarter: 2004Q2

REPORT INFORMATION
  Report Type: 
  Country: None (occurrence: None)
  Receive Date: 20040629
  Receipt Date: 20040408
  Transmission Date: 20050107
  Serious: Yes (Hospitalization)
  Sender: FDA-Public Use
  Company Number: US_0404102194

PATIENT
  Sex: Female

DRUGS (2)
  1. TAPAZOLE [Suspect]
     Indication: BASEDOW'S DISEASE
  2. INSULIN GLARGINE [Concomitant]

REACTIONS (1)
  - ANAPHYLACTIC REACTION [None]
